FAERS Safety Report 23518416 (Version 3)
Quarter: 2024Q1

REPORT INFORMATION
  Report Type: Spontaneous
  Country: US (occurrence: US)
  Receive Date: 20240213
  Receipt Date: 20240322
  Transmission Date: 20240410
  Serious: Yes (Other)
  Sender: FDA-Public Use
  Company Number: US-ELI_LILLY_AND_COMPANY-US202402002547

PATIENT
  Age: 71 Year
  Sex: Male
  Weight: 83.9 kg

DRUGS (4)
  1. HUMALOG [Suspect]
     Active Substance: INSULIN LISPRO
     Indication: Type 1 diabetes mellitus
     Dosage: UNK UNK, UNKNOWN
     Route: 065
     Dates: start: 2009
  2. HUMALOG [Suspect]
     Active Substance: INSULIN LISPRO
     Dosage: 26 U, UNKNOWN
     Route: 065
     Dates: start: 2009
  3. HUMALOG [Suspect]
     Active Substance: INSULIN LISPRO
     Dosage: 40 U, DAILY
     Route: 058
     Dates: start: 20231112
  4. CARBIDOPA\LEVODOPA [Suspect]
     Active Substance: CARBIDOPA\LEVODOPA
     Indication: Parkinson^s disease
     Dosage: UNK UNK, UNKNOWN
     Route: 065
     Dates: start: 20231211

REACTIONS (4)
  - Parkinson^s disease [Unknown]
  - Hyperglycaemia [Recovered/Resolved]
  - Therapeutic response delayed [Recovered/Resolved]
  - Hypoglycaemia [Recovered/Resolved]

NARRATIVE: CASE EVENT DATE: 20231211
